FAERS Safety Report 6140306-1 (Version None)
Quarter: 2009Q2

REPORT INFORMATION
  Report Type: 
  Country: None (occurrence: None)
  Receive Date: 20090401
  Receipt Date: 20090326
  Transmission Date: 20091009
  Serious: Yes (Death, Other)
  Sender: FDA-Public Use
  Company Number: PHHY2009AU11479

PATIENT
  Age: 20 Year
  Sex: Male

DRUGS (4)
  1. RITALIN [Suspect]
     Indication: DISTURBANCE IN ATTENTION
     Route: 048
  2. ANTIDEPRESSANTS [Concomitant]
  3. HALDOL [Concomitant]
  4. ALCOHOL [Concomitant]

REACTIONS (9)
  - BIPOLAR DISORDER [None]
  - COMPLETED SUICIDE [None]
  - DEPRESSION [None]
  - DRUG DEPENDENCE [None]
  - HALLUCINATION [None]
  - INCORRECT ROUTE OF DRUG ADMINISTRATION [None]
  - MANIA [None]
  - MOOD SWINGS [None]
  - REHABILITATION THERAPY [None]
